FAERS Safety Report 23664011 (Version 2)
Quarter: 2024Q2

REPORT INFORMATION
  Report Type: Report from Study
  Country: US (occurrence: US)
  Receive Date: 20240322
  Receipt Date: 20240401
  Transmission Date: 20240715
  Serious: Yes (Hospitalization, Other)
  Sender: FDA-Public Use
  Company Number: US-MYOVANT SCIENCES GMBH-2024MYSCI0200468

PATIENT
  Age: 79 Year
  Sex: Male

DRUGS (5)
  1. ORGOVYX [Suspect]
     Active Substance: RELUGOLIX
     Indication: Prostate cancer
     Dosage: 120 MILLIGRAM, QD
     Route: 048
  2. ORGOVYX [Suspect]
     Active Substance: RELUGOLIX
     Dosage: UNK
  3. GABAPENTIN [Concomitant]
     Active Substance: GABAPENTIN
     Indication: Neuropathy peripheral
     Dosage: UNK
     Route: 065
  4. CREON [Concomitant]
     Active Substance: PANCRELIPASE AMYLASE\PANCRELIPASE LIPASE\PANCRELIPASE PROTEASE
     Indication: Pancreatic disorder
     Dosage: UNK
     Route: 065
  5. PRAVASTATIN [Concomitant]
     Active Substance: PRAVASTATIN
     Indication: Product used for unknown indication
     Dosage: UNK
     Route: 065

REACTIONS (19)
  - Catheterisation cardiac [Unknown]
  - Coronary artery occlusion [Unknown]
  - Haemorrhage [Unknown]
  - Hot flush [Unknown]
  - Neuropathy peripheral [Not Recovered/Not Resolved]
  - Peripheral swelling [Not Recovered/Not Resolved]
  - Blood pressure increased [Not Recovered/Not Resolved]
  - Chest pain [Unknown]
  - Blood pressure decreased [Unknown]
  - Staphylococcal infection [Unknown]
  - Vascular access site infection [Unknown]
  - Pain [Unknown]
  - Blood glucose abnormal [Unknown]
  - Dyspnoea [Unknown]
  - Dysuria [Recovering/Resolving]
  - Prostatic pain [Recovering/Resolving]
  - Haematoma [Recovering/Resolving]
  - Pain in extremity [Unknown]
  - Weight increased [Unknown]

NARRATIVE: CASE EVENT DATE: 20240301
